FAERS Safety Report 5564480-0 (Version None)
Quarter: 2007Q4

REPORT INFORMATION
  Report Type: 
  Country: None (occurrence: None)
  Receive Date: 20071212
  Receipt Date: 20071204
  Transmission Date: 20080405
  Serious: Yes (Hospitalization)
  Sender: FDA-Public Use
  Company Number: 056-C5013-07040733

PATIENT
  Age: 71 Year
  Sex: Male
  Weight: 70 kg

DRUGS (6)
  1. CC-5013 (LENALIDOMIDE) (CAPSULES) [Suspect]
     Indication: MYELODYSPLASTIC SYNDROME
     Dosage: 10 MG, DAILY, ORAL
     Route: 048
     Dates: start: 20070323, end: 20070411
  2. ALDACTONE [Concomitant]
  3. LEVOTHYROXINE SODIUM [Concomitant]
  4. CORDARONE [Concomitant]
  5. DIGOXIN [Concomitant]
  6. INEXIUM (ESOMEPRAZOLE) [Concomitant]

REACTIONS (6)
  - ANAEMIA HAEMOLYTIC AUTOIMMUNE [None]
  - CARDIAC FAILURE [None]
  - CHLAMYDIAL INFECTION [None]
  - HAEMORRHAGE [None]
  - PYREXIA [None]
  - THROMBOCYTOPENIA [None]
